FAERS Safety Report 9914339 (Version 1)
Quarter: 2014Q1

REPORT INFORMATION
  Report Type: Spontaneous
  Country: BR (occurrence: BR)
  Receive Date: 20140220
  Receipt Date: 20140220
  Transmission Date: 20141002
  Serious: Yes (Hospitalization, Other)
  Sender: FDA-Public Use
  Company Number: BR-PFIZER INC-2014047109

PATIENT
  Age: 75 Year
  Sex: Male
  Weight: 50 kg

DRUGS (2)
  1. LYRICA [Suspect]
     Indication: PAIN
     Dosage: 75 MG, UNK
     Route: 048
  2. ENALAPRIL [Concomitant]
     Dosage: UNK

REACTIONS (7)
  - Dysstasia [Unknown]
  - Loss of control of legs [Unknown]
  - Diplegia [Unknown]
  - Renal disorder [Unknown]
  - Muscular weakness [Unknown]
  - Dyskinesia [Unknown]
  - Blood disorder [Unknown]
